FAERS Safety Report 12778611 (Version 2)
Quarter: 2017Q3

REPORT INFORMATION
  Report Type: Spontaneous
  Country: US (occurrence: US)
  Receive Date: 20160926
  Receipt Date: 20170921
  Transmission Date: 20171127
  Serious: No
  Sender: FDA-Public Use
  Company Number: US-AUROBINDO-AUR-APL-2015-09241

PATIENT
  Sex: Male
  Weight: 79.37 kg

DRUGS (1)
  1. ALENDRONATE SODIUM 70 [Suspect]
     Active Substance: ALENDRONATE SODIUM
     Indication: OSTEOPOROSIS
     Dosage: 70 MG, EVERY WEEK
     Route: 048

REACTIONS (2)
  - Wrong technique in product usage process [Recovered/Resolved]
  - Product quality issue [Recovered/Resolved]
